FAERS Safety Report 5485956-0 (Version None)
Quarter: 2007Q4

REPORT INFORMATION
  Report Type: 
  Country: None (occurrence: None)
  Receive Date: 20071012
  Receipt Date: 20071005
  Transmission Date: 20080405
  Serious: Yes (Life-Threatening, Hospitalization)
  Sender: FDA-Public Use
  Company Number: 028-21880-07080835

PATIENT
  Age: 77 Year
  Sex: Male

DRUGS (12)
  1. REVLIMID [Suspect]
     Indication: 5Q-SYNDROME
     Dosage: 10 MG, 2 IN 1 D, ORAL; 5 MG, 1 IN 1 D, ORAL; 2.5 MG, 1 IN 2D, ORAL
     Route: 048
     Dates: start: 20070613, end: 20070601
  2. REVLIMID [Suspect]
     Indication: 5Q-SYNDROME
     Dosage: 10 MG, 2 IN 1 D, ORAL; 5 MG, 1 IN 1 D, ORAL; 2.5 MG, 1 IN 2D, ORAL
     Route: 048
     Dates: start: 20070630, end: 20070717
  3. REVLIMID [Suspect]
     Indication: 5Q-SYNDROME
     Dosage: 10 MG, 2 IN 1 D, ORAL; 5 MG, 1 IN 1 D, ORAL; 2.5 MG, 1 IN 2D, ORAL
     Route: 048
     Dates: start: 20070806
  4. FENOFIBRATE [Concomitant]
  5. INDAPAMIDE [Concomitant]
  6. GLYBURIDE [Concomitant]
  7. ASPIRIN [Concomitant]
  8. MECLIZINE [Concomitant]
  9. DILTIAZEM [Concomitant]
  10. ALLOPURINOL [Concomitant]
  11. VASOTEC [Concomitant]
  12. LOZIDE (INDAPAMIDE HEMIHYDRATE) [Concomitant]

REACTIONS (2)
  - DIVERTICULITIS [None]
  - FEBRILE NEUTROPENIA [None]
